FAERS Safety Report 16715903 (Version 1)
Quarter: 2019Q3

REPORT INFORMATION
  Report Type: Spontaneous
  Country: GR (occurrence: GR)
  Receive Date: 20190819
  Receipt Date: 20190819
  Transmission Date: 20191005
  Serious: Yes (Hospitalization)
  Sender: FDA-Public Use
  Company Number: GR-MYLANLABS-2019M1076379

PATIENT
  Age: 34 Year
  Sex: Male

DRUGS (2)
  1. CLARITHROMYCIN. [Suspect]
     Active Substance: CLARITHROMYCIN
     Indication: PNEUMONIA
     Dosage: UNK
     Route: 065
  2. MOXIFLOXACIN. [Suspect]
     Active Substance: MOXIFLOXACIN
     Indication: PNEUMONIA
     Dosage: UNK
     Route: 065

REACTIONS (13)
  - Pleocytosis [Recovering/Resolving]
  - Confusional state [Recovering/Resolving]
  - Disorientation [Recovering/Resolving]
  - Epilepsy [Recovering/Resolving]
  - Nystagmus [Recovering/Resolving]
  - Depressed level of consciousness [Recovering/Resolving]
  - Muscular weakness [Recovering/Resolving]
  - Musculoskeletal stiffness [Recovering/Resolving]
  - Somnolence [Recovering/Resolving]
  - Encephalitis [Recovering/Resolving]
  - Meningitis aseptic [Recovering/Resolving]
  - Atypical pneumonia [Recovering/Resolving]
  - Ophthalmoplegia [Recovering/Resolving]
